FAERS Safety Report 7435717-8 (Version None)
Quarter: 2011Q2

REPORT INFORMATION
  Report Type: 
  Country: None (occurrence: None)
  Receive Date: 20110418
  Receipt Date: 20110401
  Transmission Date: 20111010
  Serious: Yes (Death)
  Sender: FDA-Public Use
  Company Number: AE 2011-143

PATIENT
  Age: 49 Year
  Sex: Male

DRUGS (1)
  1. CLOZAPINE [Suspect]

REACTIONS (6)
  - DYSPEPSIA [None]
  - FALL [None]
  - VOMITING [None]
  - NAUSEA [None]
  - PULMONARY OEDEMA [None]
  - CHEST PAIN [None]
